FAERS Safety Report 6199280-4 (Version None)
Quarter: 2009Q2

REPORT INFORMATION
  Report Type: 
  Country: None (occurrence: None)
  Receive Date: 20090522
  Receipt Date: 20090515
  Transmission Date: 20091009
  Serious: Yes (Other)
  Sender: FDA-Public Use
  Company Number: PHEH2009US04981

PATIENT
  Sex: Female

DRUGS (13)
  1. RECLAST [Suspect]
  2. TORSEMIDE [Concomitant]
     Dosage: 20 MG, UNK
  3. SPIRONOLACTONE [Concomitant]
     Dosage: 25 MG, UNK
  4. AMILORIDE HYDROCHLORIDE [Concomitant]
     Dosage: 5 MG, UNK
  5. NEXIUM [Concomitant]
     Dosage: 40 MG, UNK
  6. MAXAIR MDI [Concomitant]
  7. IPRATROPIUM STERI-NEB [Concomitant]
     Dosage: 3 ML, UNK
  8. SYMBICORT [Concomitant]
     Dosage: 80/ 4.5 MG
  9. EPIPEN [Concomitant]
  10. SIMVASTATIN [Concomitant]
  11. FLUTICASONE PROPIONATE [Concomitant]
  12. TYLENOL (CAPLET) [Concomitant]
  13. ALKALOL [Concomitant]

REACTIONS (6)
  - ANKLE FRACTURE [None]
  - ARTHRALGIA [None]
  - FALL [None]
  - MYALGIA [None]
  - PRURITUS [None]
  - WRIST FRACTURE [None]
